FAERS Safety Report 17554428 (Version 1)
Quarter: 2020Q1

REPORT INFORMATION
  Report Type: Spontaneous
  Country: US (occurrence: US)
  Receive Date: 20200318
  Receipt Date: 20200318
  Transmission Date: 20200409
  Serious: Yes (Death, Hospitalization, Other)
  Sender: FDA-Public Use
  Company Number: US-EMCURE PHARMACEUTICALS LTD-2020-EPL-000264

PATIENT
  Age: 59 Year
  Sex: Male

DRUGS (3)
  1. TACROLIMUS. [Suspect]
     Active Substance: TACROLIMUS
     Indication: IMMUNOSUPPRESSANT DRUG THERAPY
     Dosage: UNK, (TARGET LEVELS 6-10 NG/ML AFTER POY 1)
  2. PREDNISONE. [Suspect]
     Active Substance: PREDNISONE
     Indication: IMMUNOSUPPRESSANT DRUG THERAPY
     Dosage: UNK
  3. MYCOPHENOLATE [Suspect]
     Active Substance: MYCOPHENOLIC ACID
     Indication: IMMUNOSUPPRESSANT DRUG THERAPY
     Dosage: UNK

REACTIONS (8)
  - Hepatitis C [Not Recovered/Not Resolved]
  - Pneumonia [Recovered/Resolved]
  - Trichophytic granuloma [Recovered/Resolved]
  - Parotitis [Recovered/Resolved]
  - Hepatocellular carcinoma [Fatal]
  - Staphylococcal infection [Recovered/Resolved]
  - Transplant rejection [Recovered/Resolved]
  - Urinary tract infection enterococcal [Recovered/Resolved]
